FAERS Safety Report 7596967-3 (Version None)
Quarter: 2011Q3

REPORT INFORMATION
  Report Type: 
  Country: None (occurrence: None)
  Receive Date: 20110708
  Receipt Date: 20110705
  Transmission Date: 20111222
  Serious: Yes (Death)
  Sender: FDA-Public Use
  Company Number: JP-SANOFI-AVENTIS-2011SA038195

PATIENT
  Sex: Female

DRUGS (3)
  1. ALLEGRA [Suspect]
     Route: 048
     Dates: start: 20090601, end: 20110615
  2. POLARAMINE [Concomitant]
  3. RIZE [Concomitant]

REACTIONS (4)
  - HEPATITIS FULMINANT [None]
  - TACHYCARDIA [None]
  - PLATELET COUNT DECREASED [None]
  - JAUNDICE [None]
